FAERS Safety Report 8304044-9 (Version None)
Quarter: 2012Q2

REPORT INFORMATION
  Report Type: 
  Country: None (occurrence: None)
  Receive Date: 20120423
  Receipt Date: 20120417
  Transmission Date: 20120825
  Serious: Yes (Other)
  Sender: FDA-Public Use
  Company Number: US-AMGEN-USASP2012024760

PATIENT
  Age: 64 Year
  Sex: Male
  Weight: 70 kg

DRUGS (8)
  1. TRIAMCINOLONE [Concomitant]
     Dosage: UNK
  2. PROCRIT [Suspect]
     Indication: ANAEMIA
     Dosage: 40000 IU, QWK
     Route: 058
     Dates: start: 20111101, end: 20120401
  3. SPIRONOLACTONE [Concomitant]
     Dosage: UNK
  4. TAMSULOSIN HCL [Concomitant]
     Dosage: UNK
  5. RIFAXIMIN [Concomitant]
     Dosage: UNK
  6. INSULIN [Concomitant]
     Dosage: UNK
  7. FUROSEMIDE [Concomitant]
     Dosage: UNK
  8. CARAFATE [Concomitant]
     Dosage: UNK

REACTIONS (3)
  - ANAEMIA [None]
  - RETICULOCYTOPENIA [None]
  - APLASIA PURE RED CELL [None]
